FAERS Safety Report 7587762-X (Version None)
Quarter: 2011Q3

REPORT INFORMATION
  Report Type: 
  Country: None (occurrence: None)
  Receive Date: 20110705
  Receipt Date: 20080926
  Transmission Date: 20111222
  Serious: No
  Sender: FDA-Public Use
  Company Number: 2008BI026167

PATIENT
  Age: 49 Year
  Sex: Female

DRUGS (3)
  1. CLARITIN [Concomitant]
     Route: 048
  2. TYSABRI [Suspect]
     Indication: MULTIPLE SCLEROSIS
     Route: 042
     Dates: start: 20080821, end: 20080918
  3. TYLENOL-500 [Concomitant]
     Route: 048

REACTIONS (12)
  - BACK PAIN [None]
  - VOMITING [None]
  - ERYTHEMA [None]
  - EAR PRURITUS [None]
  - URTICARIA [None]
  - NAUSEA [None]
  - PALLOR [None]
  - HEMIPARESIS [None]
  - RASH [None]
  - PRURITUS [None]
  - CONSTIPATION [None]
  - DIARRHOEA [None]
